FAERS Safety Report 17670478 (Version 1)
Quarter: 2020Q2

REPORT INFORMATION
  Report Type: Spontaneous
  Country: US (occurrence: US)
  Receive Date: 20200413
  Receipt Date: 20200413
  Transmission Date: 20200713
  Serious: Yes (Hospitalization)
  Sender: FDA-Public Use
  Company Number: None

PATIENT
  Age: 88 Year
  Sex: Male
  Weight: 74 kg

DRUGS (1)
  1. RIVAROXABAN (RIVAROXABAN 15MG TAB) [Suspect]
     Active Substance: RIVAROXABAN
     Route: 048
     Dates: start: 20191212, end: 20200111

REACTIONS (4)
  - Asthenia [None]
  - Adenocarcinoma of colon [None]
  - Haematochezia [None]
  - Gastric haemorrhage [None]

NARRATIVE: CASE EVENT DATE: 20200106
